FAERS Safety Report 6007583-9 (Version None)
Quarter: 2008Q4

REPORT INFORMATION
  Report Type: 
  Country: None (occurrence: None)
  Receive Date: 20081217
  Receipt Date: 20080514
  Transmission Date: 20090506
  Serious: No
  Sender: FDA-Public Use
  Company Number: US-ASTRAZENECA-2008UW09934

PATIENT
  Age: 54 Year
  Sex: Male
  Weight: 72.6 kg

DRUGS (3)
  1. CRESTOR [Suspect]
     Indication: BLOOD CHOLESTEROL INCREASED
     Route: 048
     Dates: start: 20080201
  2. SYNTHROID [Concomitant]
  3. VITAMINS [Concomitant]

REACTIONS (2)
  - BACK INJURY [None]
  - MYALGIA [None]
